FAERS Safety Report 13026754 (Version 1)
Quarter: 2016Q4

REPORT INFORMATION
  Report Type: Spontaneous
  Country: US (occurrence: US)
  Receive Date: 20161214
  Receipt Date: 20161214
  Transmission Date: 20170207
  Serious: No
  Sender: FDA-Public Use
  Company Number: US-SHIRE-US201618327

PATIENT
  Age: 53 Year
  Sex: Female
  Weight: 95.24 kg

DRUGS (7)
  1. UNISOL [Concomitant]
     Indication: DRY EYE
     Dosage: UNK, AS REQ^D
     Route: 047
     Dates: start: 2015
  2. PROBIOTIC                          /06395501/ [Concomitant]
     Active Substance: BIFIDOBACTERIUM ANIMALIS SUBSP. LACTIS
     Indication: INTESTINAL PERFORATION
     Dosage: 50 BILLION STRAINS, 1X/DAY:QD
     Route: 048
  3. XIIDRA [Suspect]
     Active Substance: LIFITEGRAST
     Indication: DRY EYE
     Dosage: 1 GTT BOTH EYES, 2X/DAY:BID
     Route: 047
     Dates: start: 20161128, end: 20161128
  4. PURALUBE                           /00582501/ [Concomitant]
     Indication: DRY EYE
     Dosage: UNK, AS REQ^D
     Route: 047
     Dates: start: 2015
  5. VITAMIN D                          /00107901/ [Concomitant]
     Active Substance: ERGOCALCIFEROL
     Indication: NUTRITIONAL SUPPLEMENTATION
     Dosage: 5000 IU, 1X/DAY:QD
     Route: 048
  6. FISH OIL [Concomitant]
     Active Substance: FISH OIL
     Indication: DRY EYE
     Dosage: 2 DF (GEL CAPS), 1X/DAY:QD
     Route: 048
     Dates: start: 2014
  7. AMBIEN [Concomitant]
     Active Substance: ZOLPIDEM TARTRATE
     Indication: INSOMNIA
     Dosage: 10 MG, 1X/DAY:QD
     Route: 048

REACTIONS (10)
  - Ocular hyperaemia [Unknown]
  - Euphoric mood [Recovered/Resolved]
  - Eye discharge [Unknown]
  - Hypersensitivity [Unknown]
  - Dry eye [Unknown]
  - Product quality issue [Unknown]
  - Photophobia [Not Recovered/Not Resolved]
  - Dizziness [Recovered/Resolved]
  - Vision blurred [Recovered/Resolved]
  - Instillation site reaction [Unknown]

NARRATIVE: CASE EVENT DATE: 20161128
